FAERS Safety Report 5052917-5 (Version None)
Quarter: 2006Q3

REPORT INFORMATION
  Report Type: 
  Country: None (occurrence: None)
  Receive Date: 20060712
  Receipt Date: 20060627
  Transmission Date: 20061208
  Serious: Yes (Hospitalization)
  Sender: FDA-Public Use
  Company Number: 2006S1005907

PATIENT
  Age: 40 Year
  Sex: Female

DRUGS (3)
  1. FENTANYL TRANSDERMAL SYSTEM [Suspect]
     Dosage: SEE IMAGE
     Route: 062
     Dates: start: 20060621, end: 20060621
  2. FENTANYL TRANSDERMAL SYSTEM [Suspect]
     Dosage: SEE IMAGE
     Route: 062
     Dates: start: 20050201
  3. ASMANEX [Concomitant]

REACTIONS (7)
  - APPLICATION SITE DERMATITIS [None]
  - DRUG EFFECT INCREASED [None]
  - INCORRECT DOSE ADMINISTERED [None]
  - INTENTIONAL DRUG MISUSE [None]
  - LOSS OF CONSCIOUSNESS [None]
  - OVERDOSE [None]
  - WRONG TECHNIQUE IN DRUG USAGE PROCESS [None]
